FAERS Safety Report 5902027-7 (Version None)
Quarter: 2008Q3

REPORT INFORMATION
  Report Type: 
  Country: None (occurrence: None)
  Receive Date: 20080909
  Receipt Date: 20080227
  Transmission Date: 20090109
  Serious: Yes (Other)
  Sender: FDA-Public Use
  Company Number: US-WYE-H02858208

PATIENT
  Age: 39 Year
  Sex: Female
  Weight: 65.83 kg

DRUGS (2)
  1. ADVIL [Suspect]
     Indication: BURSITIS
     Dosage: 4-5 CAPSULES AS RECOMMENDED BY PHYSICIAN, 3 TIMES, ORAL
     Route: 048
  2. MULTIVITAMINS (ASCORBIC ACID/ERGOCALICFEROL/FOLIC ACID/NICOTINAMIDE/PA [Concomitant]

REACTIONS (3)
  - ACCIDENTAL EXPOSURE [None]
  - GLOSSODYNIA [None]
  - PHARMACEUTICAL PRODUCT COMPLAINT [None]
